FAERS Safety Report 23180217 (Version 2)
Quarter: 2024Q1

REPORT INFORMATION
  Report Type: Report from Study
  Country: US (occurrence: US)
  Receive Date: 20231114
  Receipt Date: 20240303
  Transmission Date: 20240409
  Serious: Yes (Hospitalization)
  Sender: FDA-Public Use
  Company Number: US-JNJFOC-20231045726

PATIENT
  Age: 45 Year
  Sex: Female

DRUGS (1)
  1. TREMFYA [Suspect]
     Active Substance: GUSELKUMAB
     Indication: Psoriasis
     Route: 058
     Dates: start: 20230703

REACTIONS (6)
  - Pneumonia viral [Unknown]
  - Asthma [Unknown]
  - Bronchitis [Unknown]
  - COVID-19 [Unknown]
  - Influenza [Unknown]
  - Psoriasis [Unknown]

NARRATIVE: CASE EVENT DATE: 20230901
